FAERS Safety Report 5608588-X (Version None)
Quarter: 2008Q1

REPORT INFORMATION
  Report Type: 
  Country: None (occurrence: None)
  Receive Date: 20080130
  Receipt Date: 20080118
  Transmission Date: 20080703
  Serious: Yes (Hospitalization, Other)
  Sender: FDA-Public Use
  Company Number: US-PFIZER INC-2008006022

PATIENT
  Sex: Female
  Weight: 54 kg

DRUGS (7)
  1. SU-011,248 [Suspect]
     Indication: BREAST CANCER
     Route: 048
     Dates: start: 20071128, end: 20080114
  2. PACLITAXEL [Suspect]
     Indication: BREAST CANCER
     Dosage: DAILY DOSE:90MG/M2
     Route: 042
  3. LORAZEPAM [Concomitant]
     Indication: NAUSEA
  4. OMEPRAZOLE [Concomitant]
  5. PROCHLORPERAZINE [Concomitant]
  6. TICLOPIDINE HYDROCHLORIDE [Concomitant]
  7. ZOLPIDEM [Concomitant]
     Indication: INSOMNIA

REACTIONS (3)
  - HYPONATRAEMIA [None]
  - MENTAL STATUS CHANGES [None]
  - PNEUMONIA ASPIRATION [None]
